FAERS Safety Report 19935531 (Version 1)
Quarter: 2021Q4

REPORT INFORMATION
  Report Type: Report from Study
  Country: US (occurrence: US)
  Receive Date: 20211008
  Receipt Date: 20211008
  Transmission Date: 20220303
  Serious: Yes (Other)
  Sender: FDA-Public Use
  Company Number: US-TEVA-2021-US-1940596

PATIENT
  Age: 46 Year
  Sex: Female

DRUGS (1)
  1. COPAXONE [Suspect]
     Active Substance: GLATIRAMER ACETATE
     Route: 065
     Dates: start: 201910

REACTIONS (6)
  - Necrosis [Recovering/Resolving]
  - Injection site pain [Unknown]
  - Injection site bruising [Unknown]
  - Pain [Unknown]
  - Wound [Recovering/Resolving]
  - Injection site pustule [Unknown]

NARRATIVE: CASE EVENT DATE: 20210101
